FAERS Safety Report 9242196 (Version 6)
Quarter: 2021Q2

REPORT INFORMATION
  Report Type: Report from Study
  Country: CA (occurrence: CA)
  Receive Date: 20130419
  Receipt Date: 20210524
  Transmission Date: 20210717
  Serious: Yes (Death)
  Sender: FDA-Public Use
  Company Number: CA-PFIZER INC-2013122305

PATIENT

DRUGS (6)
  1. KETOCONAZOLE. [Suspect]
     Active Substance: KETOCONAZOLE
     Indication: NEOPLASM
     Dosage: 350 MG/M2, 1X/DAY (EACH MORNING)
     Route: 048
  2. DIPYRIDAMOLE. [Suspect]
     Active Substance: DIPYRIDAMOLE
     Indication: NEOPLASM
     Dosage: 100 MG/M2, 4X/DAY (EVERY 6 HOURS)
     Route: 048
  3. METRONIDAZOLE. [Suspect]
     Active Substance: METRONIDAZOLE
     Indication: NEOPLASM
     Dosage: 750 MG/M2, DAILY
     Route: 048
  4. METRONIDAZOLE. [Suspect]
     Active Substance: METRONIDAZOLE
     Indication: NEOPLASM
     Dosage: 250 MG/M2, 1X/DAY
     Route: 054
  5. ETOPOSIDE. [Suspect]
     Active Substance: ETOPOSIDE
     Indication: NEOPLASM
     Dosage: 75 MG/M2, 1X/DAY
     Route: 042
  6. TAMOXIFEN CITRATE. [Suspect]
     Active Substance: TAMOXIFEN CITRATE
     Indication: NEOPLASM
     Dosage: 100 MG/M2, 1X/DAY EACH MORNING
     Route: 048

REACTIONS (1)
  - Neutropenic sepsis [Fatal]
